FAERS Safety Report 4688837-5 (Version None)
Quarter: 2005Q2

REPORT INFORMATION
  Report Type: 
  Country: None (occurrence: None)
  Receive Date: 20050613
  Receipt Date: 20050518
  Transmission Date: 20051028
  Serious: Yes (Hospitalization)
  Sender: FDA-Public Use
  Company Number: CZ-GLAXOSMITHKLINE-B0381555A

PATIENT
  Age: 72 Year
  Sex: Male
  Weight: 50 kg

DRUGS (3)
  1. BLINDED TRIAL MEDICATION [Concomitant]
     Route: 048
     Dates: start: 20050503, end: 20050506
  2. ONDANSETRON [Suspect]
     Dosage: 32MG SINGLE DOSE
     Route: 042
     Dates: start: 20050503, end: 20050503
  3. NAVELBINE [Suspect]
     Indication: NON-SMALL CELL LUNG CANCER
     Dosage: 40MG PER DAY
     Route: 042
     Dates: start: 20050412, end: 20050503

REACTIONS (1)
  - CONSTIPATION [None]
